FAERS Safety Report 5117659-6 (Version None)
Quarter: 2006Q3

REPORT INFORMATION
  Report Type: 
  Country: None (occurrence: None)
  Receive Date: 20060928
  Receipt Date: 20060928
  Transmission Date: 20061208
  Serious: Yes (Other)
  Sender: FDA-Public Use
  Company Number: None

PATIENT
  Age: 49 Year
  Sex: Male

DRUGS (1)
  1. EZETIMIBE 10 MG ZETIA MERCK [Suspect]
     Indication: HYPERLIPIDAEMIA
     Dosage: 10 MG DAILY ORAL
     Route: 048
     Dates: start: 20060523, end: 20060801

REACTIONS (1)
  - DYSGEUSIA [None]
